FAERS Safety Report 12336033 (Version 1)
Quarter: 2016Q2

REPORT INFORMATION
  Report Type: Spontaneous
  Country: None (occurrence: BR)
  Receive Date: 20160505
  Receipt Date: 20160505
  Transmission Date: 20160815
  Serious: Yes (Other)
  Sender: FDA-Public Use
  Company Number: BR-MERCK KGAA-1051453

PATIENT

DRUGS (1)
  1. NOVOTHYROX [Suspect]
     Active Substance: LEVOTHYROXINE SODIUM

REACTIONS (7)
  - Cardiomegaly [None]
  - Eye pain [None]
  - Headache [None]
  - Drug dispensing error [None]
  - Diabetes mellitus [None]
  - Visual impairment [None]
  - Obesity [None]
